FAERS Safety Report 7808172-3 (Version None)
Quarter: 2011Q4

REPORT INFORMATION
  Report Type: 
  Country: None (occurrence: None)
  Receive Date: 20111011
  Receipt Date: 20111005
  Transmission Date: 20120403
  Serious: Yes (Hospitalization, Other)
  Sender: FDA-Public Use
  Company Number: FR-MERCK-1107FRA00148

PATIENT
  Age: 76 Year
  Sex: Male
  Weight: 90 kg

DRUGS (11)
  1. AMLODIPINE BESYLATE AND PERINDOPRIL ARGININE [Suspect]
     Indication: HYPERTENSION
     Route: 048
     Dates: start: 20100302, end: 20110704
  2. NEBIVOLOL HYDROCHLORIDE [Concomitant]
     Indication: HYPERTENSION
     Route: 065
     Dates: start: 20080219
  3. DIGOXIN [Concomitant]
     Indication: ATRIAL FIBRILLATION
     Route: 065
     Dates: start: 20080219, end: 20110704
  4. INDAPAMIDE [Concomitant]
     Indication: HYPERTENSION
     Route: 065
     Dates: start: 20080606, end: 20110704
  5. ALLOPURINOL [Concomitant]
     Indication: HYPERURICAEMIA
     Route: 065
     Dates: start: 20080606
  6. LEVOTHYROXINE SODIUM [Concomitant]
     Indication: HYPOTHYROIDISM
     Route: 065
     Dates: start: 20080219
  7. TAMSULOSIN HYDROCHLORIDE [Concomitant]
     Indication: POLLAKIURIA
     Route: 065
     Dates: start: 20010201, end: 20110704
  8. JANUMET [Suspect]
     Indication: TYPE 2 DIABETES MELLITUS
     Route: 048
     Dates: start: 20100114, end: 20110708
  9. FLUINDIONE [Concomitant]
     Indication: ATRIAL FIBRILLATION
     Route: 065
     Dates: start: 20080515
  10. NEBIVOLOL HYDROCHLORIDE [Concomitant]
     Indication: ATRIAL FIBRILLATION
     Route: 065
     Dates: start: 20080219
  11. FLUVASTATIN SODIUM [Concomitant]
     Indication: HYPERCHOLESTEROLAEMIA
     Route: 065
     Dates: start: 20020404

REACTIONS (3)
  - HYPOTENSION [None]
  - DEHYDRATION [None]
  - RENAL FAILURE ACUTE [None]
